FAERS Safety Report 5800689-6 (Version None)
Quarter: 2008Q3

REPORT INFORMATION
  Report Type: 
  Country: None (occurrence: None)
  Receive Date: 20080703
  Receipt Date: 20080627
  Transmission Date: 20090109
  Serious: Yes (Other)
  Sender: FDA-Public Use
  Company Number: US-GENENTECH-263636

PATIENT
  Sex: Female
  Weight: 51.8 kg

DRUGS (9)
  1. BEVACIZUMAB [Suspect]
     Indication: BREAST CANCER METASTATIC
     Dosage: 10 MG/KG, Q2W
     Route: 042
     Dates: start: 20080423
  2. GEMCITABINE [Suspect]
     Indication: BREAST CANCER METASTATIC
     Dosage: 1000 MG/M2, 1/WEEK
     Route: 042
     Dates: start: 20080423
  3. PACLITAXEL [Suspect]
     Indication: BREAST CANCER METASTATIC
     Dosage: 80 MG/M2, 1/WEEK
     Route: 042
     Dates: start: 20080423
  4. TAMOXIFEN CITRATE [Concomitant]
     Indication: DRUG USE FOR UNKNOWN INDICATION
  5. FASLODEX [Concomitant]
     Indication: DRUG USE FOR UNKNOWN INDICATION
  6. ZOMETA [Concomitant]
     Indication: DRUG USE FOR UNKNOWN INDICATION
     Dosage: 4 MG, Q4W
     Route: 042
     Dates: start: 20080301
  7. OXYCONTIN [Concomitant]
     Indication: DRUG USE FOR UNKNOWN INDICATION
     Dosage: 10 MG, PRN
     Route: 048
  8. RED BLOOD CELLS [Concomitant]
     Indication: ANAEMIA
     Dates: start: 20080604
  9. ARANESP [Concomitant]
     Indication: ANAEMIA
     Dosage: 300 A?G, PRN
     Dates: start: 20080604

REACTIONS (1)
  - URINARY TRACT INFECTION [None]
